FAERS Safety Report 8197762-7 (Version None)
Quarter: 2012Q1

REPORT INFORMATION
  Report Type: 
  Country: None (occurrence: None)
  Receive Date: 20120309
  Receipt Date: 20120228
  Transmission Date: 20120608
  Serious: Yes (Hospitalization)
  Sender: FDA-Public Use
  Company Number: US-SANOFI-AVENTIS-2012SA013511

PATIENT
  Age: 71 Year
  Sex: Male

DRUGS (2)
  1. LANTUS [Suspect]
     Dosage: DOSE:10 UNIT(S)
     Route: 058
  2. LANTUS [Suspect]
     Dosage: DOSE:80 UNIT(S)
     Route: 058

REACTIONS (3)
  - CORONARY ARTERY OCCLUSION [None]
  - REFUSAL OF TREATMENT BY PATIENT [None]
  - CORONARY ARTERY DISEASE [None]
